FAERS Safety Report 4801702-5 (Version None)
Quarter: 2005Q4

REPORT INFORMATION
  Report Type: 
  Country: None (occurrence: None)
  Receive Date: 20051018
  Receipt Date: 20051012
  Transmission Date: 20060501
  Serious: Yes (Hospitalization)
  Sender: FDA-Public Use
  Company Number: FR-GLAXOSMITHKLINE-B0397242A

PATIENT
  Age: 52 Year
  Sex: Female
  Weight: 51 kg

DRUGS (3)
  1. MALARONE [Suspect]
     Indication: MALARIA PROPHYLAXIS
     Dosage: 1TAB PER DAY
     Route: 048
     Dates: start: 20050803, end: 20050812
  2. ALDACTAZINE [Concomitant]
     Route: 048
  3. DAFALGAN [Concomitant]
     Indication: HEADACHE
     Dosage: 1UNIT SIX TIMES PER DAY
     Route: 048
     Dates: start: 20050919, end: 20050924

REACTIONS (5)
  - BLOOD PRESSURE SYSTOLIC INCREASED [None]
  - HEADACHE [None]
  - OEDEMA PERIPHERAL [None]
  - TRANSAMINASES INCREASED [None]
  - WEIGHT INCREASED [None]
